FAERS Safety Report 15132180 (Version 2)
Quarter: 2018Q3

REPORT INFORMATION
  Report Type: Spontaneous
  Country: DE (occurrence: DE)
  Receive Date: 20180711
  Receipt Date: 20180731
  Transmission Date: 20181010
  Serious: Yes (Other)
  Sender: FDA-Public Use
  Company Number: DE-B.I. PHARMACEUTICALS,INC./RIDGEFIELD-2018-BI-035014

PATIENT
  Age: 72 Year
  Sex: Female

DRUGS (2)
  1. GILOTRIF [Suspect]
     Active Substance: AFATINIB
     Dosage: DOSE: 1 DOSAGE FORM
     Route: 065
     Dates: start: 20180712
  2. GILOTRIF [Suspect]
     Active Substance: AFATINIB
     Indication: NON-SMALL CELL LUNG CANCER
     Route: 048
     Dates: start: 20180523, end: 20180704

REACTIONS (3)
  - Tremor [Recovered/Resolved]
  - Muscle spasms [Recovered/Resolved]
  - Decreased appetite [Recovered/Resolved]
